FAERS Safety Report 9759870 (Version 2)
Quarter: 2014Q1

REPORT INFORMATION
  Report Type: Spontaneous
  Country: FR (occurrence: FR)
  Receive Date: 20131216
  Receipt Date: 20140110
  Transmission Date: 20141002
  Serious: Yes (Hospitalization, Other)
  Sender: FDA-Public Use
  Company Number: FR-PFIZER INC-2013354545

PATIENT
  Age: 56 Year
  Sex: Female

DRUGS (24)
  1. LYRICA [Suspect]
     Dosage: 50 MG, 2X/DAY
     Route: 048
     Dates: start: 20131104
  2. VANCOMYCIN [Suspect]
     Dosage: UNK
     Route: 042
     Dates: start: 20131106, end: 20131120
  3. GENTAMICIN ^PANPHARMA^ [Suspect]
     Dosage: UNK
     Route: 042
     Dates: start: 20131106
  4. AUGMENTIN [Suspect]
     Dosage: UNK
     Dates: start: 20131104
  5. BIONOLYTE [Suspect]
     Dosage: UNK
     Route: 065
     Dates: start: 20131104
  6. CRESTOR [Suspect]
     Dosage: 10 MG, 1X/DAY
     Route: 048
     Dates: start: 20131104
  7. MOVICOL [Suspect]
     Dosage: UNK
     Route: 048
     Dates: start: 20131104
  8. KARDEGIC [Suspect]
     Dosage: UNK
     Route: 048
     Dates: start: 20131104
  9. PRIMPERAN [Suspect]
     Dosage: UNK
     Route: 048
     Dates: start: 20131105
  10. DAFALGAN [Suspect]
     Dosage: 1000 MG, 4X/DAY
     Route: 048
     Dates: start: 20131105
  11. BECILAN [Suspect]
     Dosage: 250 MG, 1X/DAY
     Route: 048
     Dates: start: 20131108
  12. BEVITINE [Suspect]
     Dosage: 250 MG, 1X/DAY
     Route: 048
     Dates: start: 20131108
  13. CONTRAMAL [Suspect]
     Dosage: 100 MG, 2X/DAY
     Route: 051
     Dates: start: 20131105
  14. CONTRAMAL [Suspect]
     Dosage: 100 MG, 2X/DAY
     Route: 048
     Dates: start: 20131110
  15. FUMAFER [Suspect]
     Dosage: 66 MG, 3X/DAY
     Route: 048
     Dates: start: 20131111
  16. VITASCORBOL [Suspect]
     Dosage: 500 MG, 2X/DAY
     Route: 048
     Dates: start: 20131111, end: 20131121
  17. TETANUS VACCINE ^PASTEUR^ [Suspect]
     Indication: IMMUNISATION
     Dosage: UNK
     Route: 058
     Dates: start: 20131112, end: 20131112
  18. TETANUS VACCINE ^PASTEUR^ [Suspect]
     Indication: PROPHYLAXIS
  19. INEXIUM /01479302/ [Suspect]
     Dosage: 40 MG, 1X/DAY
     Route: 048
     Dates: start: 20131116, end: 20131118
  20. DEXTROSE [Suspect]
     Dosage: UNK
     Route: 041
     Dates: start: 20131118
  21. IMOVANE [Suspect]
     Dosage: 7.5 MG, 1X/DAY
     Route: 048
     Dates: start: 20131118
  22. LASILIX [Concomitant]
     Dosage: UNK
     Dates: start: 20131117
  23. PIPERACILLIN SODIUM W/TAZOBACTAM SODIUM [Concomitant]
     Dosage: UNK
     Dates: start: 201311
  24. AMIKACIN [Concomitant]
     Dosage: UNK
     Dates: start: 201311

REACTIONS (6)
  - Linear IgA disease [Recovering/Resolving]
  - Rash maculo-papular [Recovering/Resolving]
  - Pruritus [Recovering/Resolving]
  - Staphylococcal sepsis [Unknown]
  - Erysipelas [Unknown]
  - Pyrexia [Unknown]
